FAERS Safety Report 23930255 (Version 1)
Quarter: 2024Q2

REPORT INFORMATION
  Report Type: Spontaneous
  Country: US (occurrence: US)
  Receive Date: 20240602
  Receipt Date: 20240602
  Transmission Date: 20240715
  Serious: Yes (Hospitalization)
  Sender: FDA-Public Use
  Company Number: US-RADIUS HEALTH INC.-2024US003655

PATIENT
  Age: 69 Year
  Sex: Female

DRUGS (1)
  1. TYMLOS [Suspect]
     Active Substance: ABALOPARATIDE
     Indication: Senile osteoporosis
     Dosage: 80 MICROGRAM, QD
     Route: 058
     Dates: start: 20240327

REACTIONS (5)
  - Aphasia [Unknown]
  - Anxiety [Unknown]
  - Pain [Unknown]
  - Therapy interrupted [Unknown]
  - Headache [Unknown]

NARRATIVE: CASE EVENT DATE: 20240520
